FAERS Safety Report 9197206 (Version 2)
Quarter: 2013Q2

REPORT INFORMATION
  Report Type: Report from Study
  Country: BR (occurrence: BR)
  Receive Date: 20130328
  Receipt Date: 20130628
  Transmission Date: 20140414
  Serious: Yes (Hospitalization)
  Sender: FDA-Public Use
  Company Number: BR-ROCHE-1207635

PATIENT
  Sex: Female
  Weight: 58 kg

DRUGS (3)
  1. MABTHERA [Suspect]
     Indication: RHEUMATOID ARTHRITIS
     Dosage: THE MOST RECENT INFUSION OF THIS MEDICATION WAS PERFORMED ON 18-JUN-2013.
     Route: 042
     Dates: start: 20121001
  2. LOSARTAN [Concomitant]
     Indication: HYPERTENSION
     Route: 065
  3. PREDNISONE [Concomitant]
     Route: 065

REACTIONS (2)
  - Arthropathy [Recovering/Resolving]
  - Blood pressure increased [Unknown]
